FAERS Safety Report 21447725 (Version 3)
Quarter: 2023Q1

REPORT INFORMATION
  Report Type: Spontaneous
  Country: ES (occurrence: ES)
  Receive Date: 20221012
  Receipt Date: 20230307
  Transmission Date: 20230418
  Serious: Yes (Hospitalization, Other)
  Sender: FDA-Public Use
  Company Number: ES-AstraZeneca-2022A229770

PATIENT
  Age: 65 Year
  Sex: Female

DRUGS (27)
  1. DOXORUBICIN HYDROCHLORIDE [Suspect]
     Active Substance: DOXORUBICIN HYDROCHLORIDE
     Indication: Diffuse large B-cell lymphoma
     Dosage: 50 MG/M2, EVERY 3 WEEKS
     Route: 042
     Dates: start: 20220606, end: 20220810
  2. VINCRISTINE SULFATE [Suspect]
     Active Substance: VINCRISTINE SULFATE
     Indication: Diffuse large B-cell lymphoma
     Dosage: 1 MG/M2, EVERY 3 WEEKS
     Route: 042
     Dates: start: 20220606, end: 20220606
  3. VINCRISTINE SULFATE [Suspect]
     Active Substance: VINCRISTINE SULFATE
     Dosage: 1 MG/M2, EVERY 3 WEEKS
     Route: 042
     Dates: start: 20220629, end: 20220810
  4. RITUXIMAB [Suspect]
     Active Substance: RITUXIMAB
     Indication: Diffuse large B-cell lymphoma
     Dosage: 375 MG/M2, EVERY 3 WEEKS
     Route: 042
     Dates: start: 20220606, end: 20220810
  5. ACALABRUTINIB [Suspect]
     Active Substance: ACALABRUTINIB
     Indication: Diffuse large B-cell lymphoma
     Dosage: FREQ:12 H;
     Route: 048
     Dates: start: 20220701, end: 20220820
  6. ACALABRUTINIB [Suspect]
     Active Substance: ACALABRUTINIB
     Dosage: FREQ:12 H;
     Route: 048
     Dates: start: 20220720, end: 20220831
  7. CYCLOPHOSPHAMIDE [Suspect]
     Active Substance: CYCLOPHOSPHAMIDE
     Indication: Diffuse large B-cell lymphoma
     Dosage: 750 MG/M2, SINGLE
     Route: 042
     Dates: start: 20220606, end: 20220606
  8. CYCLOPHOSPHAMIDE [Suspect]
     Active Substance: CYCLOPHOSPHAMIDE
     Dosage: 750 MG/M2, EVERY 3 WEEKS
     Route: 042
     Dates: start: 20220629, end: 20220810
  9. PREDNISONE [Suspect]
     Active Substance: PREDNISONE
     Indication: Diffuse large B-cell lymphoma
     Dosage: 100 MG, DAILY. DAYS 1 TO 5 OF EVERY 21 DAY CYCLE
     Route: 048
     Dates: start: 20220606, end: 20220814
  10. HYDROXYCHLOROQUINE [Concomitant]
     Active Substance: HYDROXYCHLOROQUINE
     Indication: Cutaneous lupus erythematosus
     Dosage: FREQ:12 H;
     Route: 048
  11. FILGRASTIM [Concomitant]
     Active Substance: FILGRASTIM
     Indication: Prophylaxis
     Route: 058
     Dates: start: 20220615, end: 20220619
  12. ACYCLOVIR [Concomitant]
     Active Substance: ACYCLOVIR
     Indication: Prophylaxis
     Route: 048
     Dates: start: 20220616
  13. TRIMETHOPRIM [Concomitant]
     Active Substance: TRIMETHOPRIM
     Indication: Prophylaxis
     Dosage: FREQ:56 H;
     Route: 048
     Dates: start: 20220630
  14. TRIMETHOPRIM [Concomitant]
     Active Substance: TRIMETHOPRIM
     Dosage: 80 MG, 1X/DAY
     Route: 048
     Dates: start: 20220616, end: 20220629
  15. ALLOPURINOL [Concomitant]
     Active Substance: ALLOPURINOL
     Indication: Prophylaxis
     Route: 048
     Dates: start: 20220616
  16. TAZOBACTAM [Concomitant]
     Active Substance: TAZOBACTAM
     Indication: Pneumonia
     Dosage: 4 G, 4X/DAY
     Route: 042
     Dates: start: 20220614, end: 20220620
  17. TAZOBACTAM [Concomitant]
     Active Substance: TAZOBACTAM
     Indication: Prophylaxis
     Dosage: 50 MG, 4X/DAY
     Route: 042
     Dates: start: 20220630, end: 20220712
  18. APIXABAN [Concomitant]
     Active Substance: APIXABAN
     Indication: Atrial tachycardia
     Dosage: 5 MG, 2X/DAY
     Route: 048
  19. SULFAMETHOXAZOLE [Concomitant]
     Active Substance: SULFAMETHOXAZOLE
     Indication: Prophylaxis
     Dosage: FREQ:56 H;
     Route: 048
     Dates: start: 20220630
  20. SULFAMETHOXAZOLE [Concomitant]
     Active Substance: SULFAMETHOXAZOLE
     Dosage: 400 MG, 1X/DAY
     Route: 048
     Dates: start: 20220616, end: 20220629
  21. PIPERACILLIN SODIUM\TAZOBACTAM SODIUM [Concomitant]
     Active Substance: PIPERACILLIN SODIUM\TAZOBACTAM SODIUM
     Indication: Prophylaxis
     Dosage: FREQ:6 H;
     Route: 042
     Dates: start: 20220616, end: 20220619
  22. PIPERACILLIN [Concomitant]
     Active Substance: PIPERACILLIN
     Indication: Prophylaxis
     Dosage: FREQ:6 H;
     Route: 042
     Dates: start: 20220616, end: 20220619
  23. PIPERACILLIN [Concomitant]
     Active Substance: PIPERACILLIN
     Indication: Pneumonia
     Dosage: FREQ:6 H;
     Route: 042
     Dates: start: 20220614, end: 20220620
  24. PIPERACILLIN [Concomitant]
     Active Substance: PIPERACILLIN
     Indication: Prophylaxis
     Dosage: FREQ:6 H;
     Route: 042
     Dates: start: 20220630
  25. ASPIRIN [Concomitant]
     Active Substance: ASPIRIN
     Indication: Atrial tachycardia
     Route: 048
  26. GRANULOCYTE COLONY-STIMULATING FACTOR NOS [Concomitant]
     Active Substance: GRANULOCYTE COLONY-STIMULATING FACTOR NOS
     Indication: Diffuse large B-cell lymphoma
     Dosage: 6 MG, EVERY 3 WEEKS
     Dates: start: 20220609, end: 20220810
  27. BISOPROLOL [Concomitant]
     Active Substance: BISOPROLOL
     Indication: Atrial tachycardia
     Dosage: 3 MG, 2X/DAY
     Route: 048

REACTIONS (14)
  - Febrile neutropenia [Recovered/Resolved]
  - Pneumonia pneumococcal [Unknown]
  - Haematocrit decreased [Unknown]
  - Haemoglobin decreased [Unknown]
  - Lymphocyte count decreased [Unknown]
  - Lymphocyte percentage increased [Unknown]
  - Lymphocyte percentage decreased [Unknown]
  - Monocyte count decreased [Unknown]
  - Neutrophil count decreased [Unknown]
  - Neutrophil percentage decreased [Unknown]
  - Neutrophil percentage increased [Unknown]
  - Platelet count decreased [Unknown]
  - Red blood cell count decreased [Unknown]
  - White blood cell count decreased [Unknown]

NARRATIVE: CASE EVENT DATE: 20220615
